FAERS Safety Report 13817479 (Version 4)
Quarter: 2017Q4

REPORT INFORMATION
  Report Type: Spontaneous
  Country: US (occurrence: US)
  Receive Date: 20170731
  Receipt Date: 20171121
  Transmission Date: 20180320
  Serious: No
  Sender: FDA-Public Use
  Company Number: US-BAYER-2017-143888

PATIENT
  Age: 22 Year
  Sex: Female

DRUGS (1)
  1. KYLEENA [Suspect]
     Active Substance: LEVONORGESTREL
     Indication: CONTRACEPTION
     Dosage: 17.5 MCG/24HR, CONT
     Route: 015
     Dates: start: 20170503, end: 20170503

REACTIONS (4)
  - Procedural pain [Recovered/Resolved]
  - Procedural vomiting [None]
  - Post procedural discomfort [None]
  - Procedural nausea [None]

NARRATIVE: CASE EVENT DATE: 20170503
